FAERS Safety Report 17796469 (Version 1)
Quarter: 2020Q2

REPORT INFORMATION
  Report Type: Report from Study
  Country: US (occurrence: US)
  Receive Date: 20200518
  Receipt Date: 20200518
  Transmission Date: 20200714
  Serious: Yes (Life-Threatening, Hospitalization, Other)
  Sender: FDA-Public Use
  Company Number: US-AUROBINDO-AUR-APL-2020-023951

PATIENT
  Age: 52 Year
  Sex: Male

DRUGS (4)
  1. IBUPROFEN TABLETS [Suspect]
     Active Substance: IBUPROFEN
     Dosage: INCREASED IT TO 35 TABLETS/DAY
     Route: 065
  2. PARACETAMOL [Concomitant]
     Active Substance: ACETAMINOPHEN
     Indication: PRODUCT USED FOR UNKNOWN INDICATION
     Dosage: UNK
     Route: 065
  3. IBUPROFEN TABLETS [Suspect]
     Active Substance: IBUPROFEN
     Indication: PAIN
     Dosage: FIVE TABLETS/DAY
     Route: 065
  4. TRAMADOL. [Concomitant]
     Active Substance: TRAMADOL
     Indication: PRODUCT USED FOR UNKNOWN INDICATION
     Dosage: UNK
     Route: 065

REACTIONS (11)
  - Hypokalaemia [Recovered/Resolved]
  - Decreased appetite [Unknown]
  - Renal tubular acidosis [Unknown]
  - Adrenocorticotropic hormone deficiency [Unknown]
  - Hyperaldosteronism [Unknown]
  - Musculoskeletal pain [Unknown]
  - Gait disturbance [Unknown]
  - Medication error [Unknown]
  - Electrocardiogram QT prolonged [Unknown]
  - Back pain [Unknown]
  - Weight decreased [Unknown]
